FAERS Safety Report 8217472-7 (Version None)
Quarter: 2012Q1

REPORT INFORMATION
  Report Type: 
  Country: None (occurrence: None)
  Receive Date: 20120314
  Receipt Date: 20120305
  Transmission Date: 20120608
  Serious: Yes (Other)
  Sender: FDA-Public Use
  Company Number: AUR-APL-2012-01335

PATIENT
  Age: 70 Year
  Sex: Female
  Weight: 82.09 kg

DRUGS (9)
  1. METOPROLOL TARTRATE [Suspect]
     Indication: BLOOD PRESSURE ABNORMAL
     Dosage: (50 MG,1 D) ; 50 MG (25 MG,2 IN 1 D)
  2. METOPROLOL TARTRATE [Suspect]
     Indication: CARDIAC DISORDER
     Dosage: (50 MG,1 D) ; 50 MG (25 MG,2 IN 1 D)
  3. LEVOTHYROXINE SODIUM [Concomitant]
  4. CALCIUM CARBONATE [Concomitant]
  5. VITAMIN D [Concomitant]
  6. ASPIRIN [Concomitant]
  7. LIPITOR [Suspect]
     Indication: CARDIAC DISORDER
     Dosage: 30 MG (60 MG,1 IN 2 D) ; 60MG AND 40MG DAILY ON ALTERNATE DAYS (40 MG,1 IN 2 D)
  8. LIPITOR [Suspect]
     Indication: BLOOD CHOLESTEROL ABNORMAL
     Dosage: 30 MG (60 MG,1 IN 2 D) ; 60MG AND 40MG DAILY ON ALTERNATE DAYS (40 MG,1 IN 2 D)
  9. ZETIA [Suspect]
     Indication: BLOOD CHOLESTEROL ABNORMAL
     Dosage: (10 MG,1 D) ; 5 MG (10 MG,1 IN 2 D)
     Dates: end: 20120201

REACTIONS (12)
  - MUSCLE SPASMS [None]
  - OSTEOPOROSIS [None]
  - BODY HEIGHT DECREASED [None]
  - RENAL DISORDER [None]
  - JOINT SWELLING [None]
  - CHROMATURIA [None]
  - WEIGHT DECREASED [None]
  - POLLAKIURIA [None]
  - DIABETES MELLITUS [None]
  - RESTLESSNESS [None]
  - HYPOAESTHESIA [None]
  - DRUG DOSE OMISSION [None]
